FAERS Safety Report 25450708 (Version 4)
Quarter: 2025Q4

REPORT INFORMATION
  Report Type: Spontaneous
  Country: US (occurrence: US)
  Receive Date: 20250618
  Receipt Date: 20251031
  Transmission Date: 20260117
  Serious: Yes (Other)
  Sender: PFIZER
  Company Number: US-PFIZER INC-202500122782

PATIENT
  Age: 66 Year
  Sex: Male

DRUGS (1)
  1. VELSIPITY [Suspect]
     Active Substance: ETRASIMOD ARGININE
     Dosage: 2 MG

REACTIONS (4)
  - Colitis [Not Recovered/Not Resolved]
  - Cough [Unknown]
  - Nasal congestion [Unknown]
  - Nasopharyngitis [Unknown]
